FAERS Safety Report 8579667-2 (Version None)
Quarter: 2012Q3

REPORT INFORMATION
  Report Type: 
  Country: None (occurrence: None)
  Receive Date: 20120808
  Receipt Date: 20120730
  Transmission Date: 20120928
  Serious: Yes (Other)
  Sender: FDA-Public Use
  Company Number: JP-AMGEN-JPNSP2012048427

PATIENT
  Age: 50 Year
  Sex: Female

DRUGS (2)
  1. BLOOD TRANSFUSION, AUXILIARY PRODUCTS [Concomitant]
     Indication: PANCYTOPENIA
  2. FILGRASTIM [Suspect]
     Indication: PANCYTOPENIA
     Dosage: 100 MUG, QD
     Route: 058

REACTIONS (2)
  - PANCYTOPENIA [None]
  - SPINAL DISORDER [None]
